FAERS Safety Report 18040281 (Version 1)
Quarter: 2020Q3

REPORT INFORMATION
  Report Type: Spontaneous
  Country: DE (occurrence: DE)
  Receive Date: 20200717
  Receipt Date: 20200717
  Transmission Date: 20201103
  Serious: Yes (Other)
  Sender: FDA-Public Use
  Company Number: DE-BAUSCH-BL-2020-016379

PATIENT
  Sex: Female

DRUGS (2)
  1. TIM?OPHTAL 0.25% SINE [Suspect]
     Active Substance: TIMOLOL MALEATE
     Indication: GLAUCOMA
     Dosage: TWO TIMES DAILY IN BOTH EYES
     Route: 047
     Dates: start: 2020
  2. CLONID OPHTAL 1/8% SINE [Suspect]
     Active Substance: CLONIDINE HYDROCHLORIDE
     Indication: GLAUCOMA
     Dosage: 3 TIMES DAILY IN BOTH EYES
     Route: 047
     Dates: start: 2020, end: 202006

REACTIONS (4)
  - Hypoxia [Unknown]
  - Nail disorder [Recovering/Resolving]
  - Head discomfort [Recovered/Resolved]
  - Overdose [Unknown]

NARRATIVE: CASE EVENT DATE: 2020
